FAERS Safety Report 9902504 (Version 2)
Quarter: 2014Q1

REPORT INFORMATION
  Report Type: Spontaneous
  Country: JP (occurrence: JP)
  Receive Date: 20140217
  Receipt Date: 20140317
  Transmission Date: 20141002
  Serious: Yes (Hospitalization)
  Sender: FDA-Public Use
  Company Number: JP-JNJFOC-20140207160

PATIENT
  Age: 75 Year
  Sex: Male

DRUGS (8)
  1. XARELTO [Suspect]
     Indication: EMBOLISM VENOUS
     Route: 048
     Dates: start: 20130419, end: 20140131
  2. XARELTO [Suspect]
     Indication: THROMBOSIS PROPHYLAXIS
     Route: 048
     Dates: start: 20130419, end: 20140131
  3. HERBAL PREPARATION [Suspect]
     Indication: RHINITIS
     Route: 048
  4. TS 1 [Suspect]
     Indication: CHEMOTHERAPY
     Route: 048
  5. TAKEPRON [Concomitant]
     Indication: GASTRITIS
     Route: 048
  6. ADALAT-L [Concomitant]
     Indication: HYPERTENSION
     Route: 048
  7. HALCION [Concomitant]
     Indication: INSOMNIA
     Route: 048
  8. GASMOTIN [Concomitant]
     Indication: GASTRITIS
     Route: 048

REACTIONS (1)
  - Interstitial lung disease [Recovering/Resolving]
